FAERS Safety Report 7443590-7 (Version None)
Quarter: 2011Q2

REPORT INFORMATION
  Report Type: 
  Country: None (occurrence: None)
  Receive Date: 20110428
  Receipt Date: 20110106
  Transmission Date: 20111010
  Serious: Yes (Other)
  Sender: FDA-Public Use
  Company Number: PHFR2010GB03386

PATIENT
  Sex: Male

DRUGS (2)
  1. CLOZARIL [Suspect]
     Indication: SCHIZOPHRENIA
     Dosage: UNK
     Route: 048
     Dates: start: 20100816
  2. CLOZARIL [Suspect]
     Dosage: 300MG/DOSE IN ERROR
     Route: 048
     Dates: start: 20100906, end: 20100907

REACTIONS (2)
  - SOMNOLENCE [None]
  - MEDICATION ERROR [None]
